FAERS Safety Report 8440820-X (Version None)
Quarter: 2012Q2

REPORT INFORMATION
  Report Type: 
  Country: None (occurrence: None)
  Receive Date: 20120615
  Receipt Date: 20110429
  Transmission Date: 20120825
  Serious: No
  Sender: FDA-Public Use
  Company Number: US-NOVEN-11US002380

PATIENT

DRUGS (2)
  1. DAYTRANA [Suspect]
     Indication: AUTISM
     Dosage: 10MG + 15MG PATCHES (2) DAILY
     Route: 062
     Dates: start: 20101201
  2. DAYTRANA [Suspect]
     Dosage: 10MG + 15MG PATCHES (2) DAILY
     Route: 062
     Dates: start: 20101201

REACTIONS (4)
  - PRODUCT QUALITY ISSUE [None]
  - OFF LABEL USE [None]
  - WRONG TECHNIQUE IN DRUG USAGE PROCESS [None]
  - INCORRECT DRUG ADMINISTRATION DURATION [None]
